FAERS Safety Report 6221599-9 (Version None)
Quarter: 2009Q2

REPORT INFORMATION
  Report Type: 
  Country: None (occurrence: None)
  Receive Date: 20090610
  Receipt Date: 20090529
  Transmission Date: 20091009
  Serious: Yes (Other)
  Sender: FDA-Public Use
  Company Number: IT-WATSON-2009-03938

PATIENT
  Age: 44 Year
  Sex: Female

DRUGS (5)
  1. TRELSTAR DEPOT [Suspect]
     Indication: BREAST CANCER
     Dosage: 3.75 MG, DAILY
     Route: 065
  2. TRELSTAR DEPOT [Suspect]
     Dosage: 3.75 MG, DAILY
     Route: 065
     Dates: start: 20080901
  3. TAMOXIFEN CITRATE [Suspect]
     Indication: BREAST CANCER
     Dosage: UNK
     Route: 065
  4. TAMOXIFEN CITRATE [Suspect]
     Dosage: UNK
     Route: 065
     Dates: start: 20080901
  5. AROMATASE INHIBITOR [Suspect]
     Indication: BREAST CANCER
     Dosage: UNK
     Route: 065
     Dates: start: 20080901

REACTIONS (6)
  - BASEDOW'S DISEASE [None]
  - EXOPHTHALMOS [None]
  - FACTOR V LEIDEN MUTATION [None]
  - HYPERTENSION [None]
  - PARAESTHESIA [None]
  - THROMBOSIS [None]
